FAERS Safety Report 14612506 (Version 1)
Quarter: 2018Q1

REPORT INFORMATION
  Report Type: Spontaneous
  Country: US (occurrence: US)
  Receive Date: 20180308
  Receipt Date: 20180308
  Transmission Date: 20180509
  Serious: No
  Sender: FDA-Public Use
  Company Number: US-GLAXOSMITHKLINE-US2018034022

PATIENT
  Age: 68 Year
  Sex: Female

DRUGS (2)
  1. ALLI [Suspect]
     Active Substance: ORLISTAT
     Indication: WEIGHT LOSS DIET
     Dosage: I ONLY TOOK ONE CAPSULE 1 DF, 1D
  2. ALLI [Suspect]
     Active Substance: ORLISTAT
     Dosage: BUT TODAY I TOOK ANOTHER CAPSULE AFTER BREAKFAST  1 DF, 1D
     Dates: start: 20180227

REACTIONS (7)
  - Somnolence [Not Recovered/Not Resolved]
  - Diarrhoea [Recovering/Resolving]
  - Feeling hot [Recovering/Resolving]
  - Abdominal pain upper [Recovering/Resolving]
  - Vomiting [Recovering/Resolving]
  - Hyperhidrosis [Recovering/Resolving]
  - Dizziness [Recovered/Resolved]
